FAERS Safety Report 17524614 (Version 1)
Quarter: 2020Q1

REPORT INFORMATION
  Report Type: Spontaneous
  Country: US (occurrence: US)
  Receive Date: 20200310
  Receipt Date: 20200310
  Transmission Date: 20200409
  Serious: Yes (Other)
  Sender: FDA-Public Use
  Company Number: None

PATIENT
  Age: 61 Year
  Sex: Female
  Weight: 69.3 kg

DRUGS (8)
  1. CRANBERRY. [Concomitant]
     Active Substance: CRANBERRY
  2. VITAMIN K2 [Concomitant]
     Active Substance: MENAQUINONE 6
  3. BIOTIN [Concomitant]
     Active Substance: BIOTIN
  4. PROBIOTICS [Concomitant]
     Active Substance: PROBIOTICS NOS
  5. DALFAMPRIDINE. [Suspect]
     Active Substance: DALFAMPRIDINE
     Indication: MULTIPLE SCLEROSIS
     Dosage: ?          QUANTITY:1 TABLET(S);?
     Route: 048
     Dates: start: 20200127, end: 20200310
  6. VITAMIN D3 [Concomitant]
     Active Substance: CHOLECALCIFEROL
  7. MAGNESIUM [Concomitant]
     Active Substance: MAGNESIUM
  8. VITAMIN B2 [Concomitant]
     Active Substance: RIBOFLAVIN

REACTIONS (5)
  - Arthralgia [None]
  - Product substitution issue [None]
  - Drug ineffective [None]
  - Gait inability [None]
  - Fall [None]

NARRATIVE: CASE EVENT DATE: 20200127
